FAERS Safety Report 5052101-5 (Version None)
Quarter: 2006Q3

REPORT INFORMATION
  Report Type: 
  Country: None (occurrence: None)
  Receive Date: 20060711
  Receipt Date: 20060621
  Transmission Date: 20061208
  Serious: Yes (Hospitalization)
  Sender: FDA-Public Use
  Company Number: FR200606004456

PATIENT
  Age: 47 Year
  Sex: Male

DRUGS (8)
  1. PROZAC [Suspect]
     Dosage: 20 MG, DAILY (1/D), ORAL
     Route: 048
     Dates: end: 20060516
  2. LEPTIUR              (TRIPATEPINE HYDROCHLORIDE) [Concomitant]
  3. KALETRA              (LOPINAVIRM RITONAVIR) [Concomitant]
  4. ABACAVIR [Concomitant]
  5. LEXOMIL (BROMAZEPAM) [Concomitant]
  6. DITROPAN [Concomitant]
  7. PRAXILENE (NAFTIDROFURYL OXALATE) [Concomitant]
  8. MOPRAL        (OMEPRZOLE) [Concomitant]

REACTIONS (1)
  - STATUS EPILEPTICUS [None]
